FAERS Safety Report 13213627 (Version 2)
Quarter: 2017Q2

REPORT INFORMATION
  Report Type: Spontaneous
  Country: US (occurrence: US)
  Receive Date: 20170210
  Receipt Date: 20170406
  Transmission Date: 20170830
  Serious: No
  Sender: FDA-Public Use
  Company Number: US-ELI_LILLY_AND_COMPANY-US201608002352

PATIENT
  Age: 52 Year
  Sex: Female
  Weight: 112.93 kg

DRUGS (17)
  1. CYMBALTA [Suspect]
     Active Substance: DULOXETINE HYDROCHLORIDE
     Dosage: 120 MG, QD BEFORE BED / NIGHTS
     Route: 048
     Dates: start: 20131103
  2. CRESTOR [Concomitant]
     Active Substance: ROSUVASTATIN CALCIUM
     Dosage: 40 MG, QD
     Route: 048
     Dates: start: 20120925
  3. FISH OIL [Concomitant]
     Active Substance: FISH OIL
     Dosage: UNK
     Route: 065
     Dates: start: 20120104
  4. CYMBALTA [Suspect]
     Active Substance: DULOXETINE HYDROCHLORIDE
     Indication: DEPRESSION
     Dosage: 60 MG, QD
     Route: 048
     Dates: start: 20130402
  5. CYMBALTA [Suspect]
     Active Substance: DULOXETINE HYDROCHLORIDE
     Dosage: 120 MG, QD BEFORE BED / NIGHTS
     Route: 048
     Dates: start: 20130402
  6. BUTALBITAL APAP CAFFEINE [Concomitant]
     Indication: PAIN
     Dosage: UNK, PRN
     Route: 048
  7. LOSARTAN POTASSIUM. [Concomitant]
     Active Substance: LOSARTAN POTASSIUM
     Dosage: UNK, QD
     Route: 048
     Dates: start: 20120911
  8. CYMBALTA [Suspect]
     Active Substance: DULOXETINE HYDROCHLORIDE
     Indication: ANXIETY
     Dosage: 60 MG, QD
     Route: 048
     Dates: start: 20120911, end: 20130306
  9. CLORAZEPATE DIPOTASSIUM. [Concomitant]
     Active Substance: CLORAZEPATE DIPOTASSIUM
     Dosage: 15 MG, BID
     Route: 048
     Dates: start: 20120305
  10. ESTRADIOL                          /00045404/ [Concomitant]
     Dosage: UNK, WEEKLY (1/W)
     Route: 062
     Dates: start: 20120305
  11. CYMBALTA [Suspect]
     Active Substance: DULOXETINE HYDROCHLORIDE
     Dosage: 120 MG, QD BEFORE BED / NIGHTS
     Route: 048
     Dates: start: 20130526
  12. CYMBALTA [Suspect]
     Active Substance: DULOXETINE HYDROCHLORIDE
     Dosage: 120 MG, QD BEFORE BED / NIGHTS
     Route: 048
     Dates: start: 20130729
  13. CYMBALTA [Suspect]
     Active Substance: DULOXETINE HYDROCHLORIDE
     Dosage: 120 MG, QD BEFORE BED / NIGHTS
     Route: 048
     Dates: start: 20130929
  14. CYMBALTA [Suspect]
     Active Substance: DULOXETINE HYDROCHLORIDE
     Dosage: 120 MG, QD BEFORE BED / NIGHTS
     Route: 048
     Dates: start: 20131211
  15. CYCLOBENZAPRINE HCL [Concomitant]
     Active Substance: CYCLOBENZAPRINE HYDROCHLORIDE
     Dosage: 5 MG, UNKNOWN
     Route: 048
     Dates: start: 20120911
  16. MELOXICAM. [Concomitant]
     Active Substance: MELOXICAM
     Indication: MUSCULOSKELETAL PAIN
     Dosage: 15 MG, PRN
     Route: 048
     Dates: start: 20111025
  17. CYMBALTA [Suspect]
     Active Substance: DULOXETINE HYDROCHLORIDE
     Dosage: 120 MG, QD BEFORE BED / NIGHTS
     Route: 048
     Dates: start: 20130428

REACTIONS (20)
  - Dysphoria [Unknown]
  - Fatigue [Unknown]
  - Panic attack [Unknown]
  - Sensory disturbance [Unknown]
  - Tinnitus [Unknown]
  - Tremor [Unknown]
  - Hyperhidrosis [Unknown]
  - Affect lability [Unknown]
  - Appetite disorder [Unknown]
  - Depression [Unknown]
  - Drug dose omission [Unknown]
  - Drug withdrawal syndrome [Unknown]
  - Anxiety [Unknown]
  - Lethargy [Unknown]
  - Agitation [Unknown]
  - Vertigo [Unknown]
  - Paraesthesia [Unknown]
  - Dizziness [Unknown]
  - Irritability [Unknown]
  - Insomnia [Unknown]

NARRATIVE: CASE EVENT DATE: 20130131
